FAERS Safety Report 22239655 (Version 1)
Quarter: 2023Q2

REPORT INFORMATION
  Report Type: Spontaneous
  Country: US (occurrence: US)
  Receive Date: 20230421
  Receipt Date: 20230421
  Transmission Date: 20230721
  Serious: No
  Sender: FDA-Public Use
  Company Number: US-FreseniusKabi-FK202304492

PATIENT
  Age: 79 Year
  Sex: Male
  Weight: 80.50 kg

DRUGS (6)
  1. DEXAMETHASONE [Suspect]
     Active Substance: DEXAMETHASONE
     Indication: Premedication
     Route: 042
     Dates: start: 20230309
  2. ONPATTRO [Suspect]
     Active Substance: PATISIRAN SODIUM
     Indication: Amyloidosis senile
     Dosage: Q3W?THERAPY ONGOING
     Route: 042
     Dates: start: 20230309
  3. ONPATTRO [Suspect]
     Active Substance: PATISIRAN SODIUM
     Indication: Cardiomyopathy
     Dosage: Q3W
     Route: 042
     Dates: start: 20230216
  4. APIXABAN [Concomitant]
     Active Substance: APIXABAN
     Indication: Atrial flutter
     Dosage: THERAPY ONGOING
     Dates: start: 202211
  5. TAFAMIDIS [Concomitant]
     Active Substance: TAFAMIDIS
     Indication: Amyloidosis senile
     Dosage: THERAPY ONGOING
     Dates: start: 20220307
  6. ATORVASTATIN [Concomitant]
     Active Substance: ATORVASTATIN
     Indication: Hyperlipidaemia
     Dosage: THERAPY ONGOING
     Dates: start: 20000302

REACTIONS (2)
  - Anal pruritus [Recovered/Resolved]
  - Skin burning sensation [Recovered/Resolved]

NARRATIVE: CASE EVENT DATE: 20230309
